FAERS Safety Report 6151937-7 (Version None)
Quarter: 2009Q2

REPORT INFORMATION
  Report Type: 
  Country: None (occurrence: None)
  Receive Date: 20090410
  Receipt Date: 20090407
  Transmission Date: 20091009
  Serious: Yes (Hospitalization, Other)
  Sender: FDA-Public Use
  Company Number: DE-ROXANE LABORATORIES, INC.-2009-RO-00350RO

PATIENT
  Age: 31 Year
  Sex: Female

DRUGS (9)
  1. COCAINE [Suspect]
     Indication: DRUG ABUSE
  2. DIAZEPAM [Suspect]
     Indication: DRUG ABUSE
     Dosage: 40MG
  3. METHADONE HCL [Suspect]
     Indication: DRUG WITHDRAWAL MAINTENANCE THERAPY
     Dosage: 20MG
  4. METHADONE HCL [Suspect]
  5. DIAMORPHINE [Suspect]
     Indication: DRUG WITHDRAWAL MAINTENANCE THERAPY
     Dosage: 500MG
     Dates: start: 20021201
  6. DIAMORPHINE [Suspect]
     Dosage: 260MG
  7. DIAMORPHINE [Suspect]
     Dosage: 210MG
  8. NICOTINE [Suspect]
     Indication: TOBACCO ABUSE
  9. HEROIN [Suspect]
     Indication: DRUG ABUSE
     Route: 042

REACTIONS (4)
  - CERVICAL INCOMPETENCE [None]
  - DEEP VEIN THROMBOSIS [None]
  - DRUG ABUSE [None]
  - PREMATURE LABOUR [None]
